FAERS Safety Report 5224725-3 (Version None)
Quarter: 2007Q1

REPORT INFORMATION
  Report Type: 
  Country: None (occurrence: None)
  Receive Date: 20070131
  Receipt Date: 20070123
  Transmission Date: 20070707
  Serious: Yes (Death, Hospitalization)
  Sender: FDA-Public Use
  Company Number: HQWYE128102JAN07

PATIENT
  Age: 74 Year
  Sex: Female

DRUGS (14)
  1. CORDARONE [Suspect]
     Indication: HYPERTENSIVE CARDIOMYOPATHY
     Route: 048
  2. NEBCIN [Suspect]
     Indication: SKIN ULCER
     Dosage: 25 MG/8 INJECTIONS TOTAL
     Route: 051
     Dates: start: 20060710, end: 20060712
  3. PREVISCAN [Suspect]
     Indication: HYPERTENSIVE CARDIOMYOPATHY
     Route: 048
  4. GENTAMICIN SULFATE [Suspect]
     Indication: SKIN ULCER
     Dosage: 80 MG/8 INJECTIONS TOTAL
     Route: 051
     Dates: start: 20060713, end: 20060715
  5. LASIX [Suspect]
     Indication: HYPERTENSIVE CARDIOMYOPATHY
     Route: 048
  6. CORVASAL [Concomitant]
     Route: 048
  7. ADANCOR [Concomitant]
     Route: 048
  8. PERINDOPRIL ERBUMINE [Concomitant]
     Route: 048
  9. IMOVANE [Concomitant]
     Route: 048
  10. NEXIUM [Concomitant]
     Route: 048
  11. SEREVENT [Concomitant]
     Route: 055
  12. MIXTARD HUMAN 70/30 [Concomitant]
     Dosage: 30 IU IN THE MORNING/24 IU IN THE EVENING
     Route: 058
  13. ZYLORIC [Suspect]
     Dosage: NOT PROVIDED
     Route: 048
     Dates: start: 20060601, end: 20060922
  14. ALDACTONE [Concomitant]
     Route: 048

REACTIONS (6)
  - DERMATITIS ALLERGIC [None]
  - DISEASE PROGRESSION [None]
  - PRURIGO [None]
  - RASH ERYTHEMATOUS [None]
  - SKIN ULCER [None]
  - TOXIC SKIN ERUPTION [None]
